FAERS Safety Report 18486946 (Version 2)
Quarter: 2021Q1

REPORT INFORMATION
  Report Type: Spontaneous
  Country: US (occurrence: US)
  Receive Date: 20201110
  Receipt Date: 20210126
  Transmission Date: 20210419
  Serious: Yes (Other)
  Sender: FDA-Public Use
  Company Number: US-PURDUE-USA-2020-0175709

PATIENT
  Sex: Male

DRUGS (1)
  1. HYDROCODONE BITARTRATE (SIMILAR TO NDA 206627) [Suspect]
     Active Substance: HYDROCODONE BITARTRATE
     Indication: PAIN
     Dosage: UNK
     Route: 065

REACTIONS (15)
  - Physiotherapy [Unknown]
  - Drug dependence [Unknown]
  - Decreased interest [Unknown]
  - Insomnia [Unknown]
  - Drug withdrawal syndrome [Unknown]
  - Mental disorder [Unknown]
  - Nausea [Unknown]
  - Unevaluable event [Unknown]
  - Quality of life decreased [Unknown]
  - Thinking abnormal [Unknown]
  - Emotional distress [Unknown]
  - Diarrhoea [Unknown]
  - General physical health deterioration [Unknown]
  - Decreased appetite [Unknown]
  - Anxiety [Unknown]
